FAERS Safety Report 25603712 (Version 2)
Quarter: 2025Q4

REPORT INFORMATION
  Report Type: Spontaneous
  Country: EU (occurrence: EU)
  Receive Date: 20250725
  Receipt Date: 20251023
  Transmission Date: 20260117
  Serious: Yes (Other)
  Sender: JOHNSON AND JOHNSON
  Company Number: EU-JNJFOC-20250721194

PATIENT
  Sex: Female

DRUGS (1)
  1. TREMFYA [Suspect]
     Active Substance: GUSELKUMAB
     Indication: Psoriasis
     Route: 058
     Dates: start: 20190101

REACTIONS (5)
  - Psoriatic arthropathy [Unknown]
  - Chills [Unknown]
  - Headache [Unknown]
  - Abdominal pain upper [Unknown]
  - Psoriasis [Unknown]
